FAERS Safety Report 13750030 (Version 1)
Quarter: 2017Q3

REPORT INFORMATION
  Report Type: Spontaneous
  Country: US (occurrence: US)
  Receive Date: 20170713
  Receipt Date: 20170713
  Transmission Date: 20171127
  Serious: No
  Sender: FDA-Public Use
  Company Number: US-ASTELLAS-2016US047731

PATIENT
  Age: 72 Year
  Sex: Male

DRUGS (1)
  1. MYRBETRIQ [Suspect]
     Active Substance: MIRABEGRON
     Indication: POLLAKIURIA
     Route: 048
     Dates: start: 201611, end: 201611

REACTIONS (5)
  - Genital rash [Unknown]
  - Genital blister [Recovering/Resolving]
  - Pain of skin [Recovering/Resolving]
  - Blister [Recovering/Resolving]
  - Oedema genital [Unknown]

NARRATIVE: CASE EVENT DATE: 20161124
